FAERS Safety Report 15664468 (Version 3)
Quarter: 2020Q2

REPORT INFORMATION
  Report Type: Report from Study
  Country: CA (occurrence: CA)
  Receive Date: 20181128
  Receipt Date: 20200506
  Transmission Date: 20200713
  Serious: Yes (Hospitalization, Other)
  Sender: FDA-Public Use
  Company Number: CA-GLAXOSMITHKLINE-CA2018GSK213303

PATIENT
  Sex: Female

DRUGS (1)
  1. MEPOLIZUMAB [Suspect]
     Active Substance: MEPOLIZUMAB
     Indication: ASTHMA
     Dosage: 100 MG, Z(MONTHLLY)
     Route: 042
     Dates: start: 20160923

REACTIONS (10)
  - Loss of personal independence in daily activities [Recovered/Resolved]
  - Cough [Unknown]
  - Lung disorder [Unknown]
  - Wheezing [Unknown]
  - Drug ineffective [Unknown]
  - Pneumonia [Unknown]
  - Sleep disorder [Recovered/Resolved]
  - Neoplasm malignant [Recovered/Resolved]
  - Dyspnoea [Unknown]
  - Asthma [Recovered/Resolved]
